FAERS Safety Report 7324359-0 (Version None)
Quarter: 2011Q1

REPORT INFORMATION
  Report Type: 
  Country: None (occurrence: None)
  Receive Date: 20110301
  Receipt Date: 20110222
  Transmission Date: 20110831
  Serious: No
  Sender: FDA-Public Use
  Company Number: US-ROXANE LABORATORIES, INC.-2011-RO-00224RO

PATIENT
  Age: 75 Year
  Sex: Female

DRUGS (1)
  1. CODEINE [Suspect]

REACTIONS (2)
  - VOMITING [None]
  - ABDOMINAL DISCOMFORT [None]
